FAERS Safety Report 12884666 (Version 1)
Quarter: 2016Q4

REPORT INFORMATION
  Report Type: Spontaneous
  Country: US (occurrence: US)
  Receive Date: 20161026
  Receipt Date: 20161026
  Transmission Date: 20170207
  Serious: No
  Sender: FDA-Public Use
  Company Number: US-BAYER-2016-201180

PATIENT
  Age: 50 Year
  Sex: Male

DRUGS (2)
  1. PEPTO-BISMOL [Concomitant]
     Active Substance: BISMUTH SUBSALICYLATE
  2. MIRALAX [Suspect]
     Active Substance: POLYETHYLENE GLYCOL 3350
     Indication: GASTROINTESTINAL DISORDER
     Dosage: 1 DF, QD
     Route: 048

REACTIONS (7)
  - Dyschezia [Unknown]
  - Faeces discoloured [Unknown]
  - Bowel movement irregularity [Unknown]
  - Drug ineffective [Unknown]
  - Gastrointestinal disorder [Unknown]
  - Product use issue [Unknown]
  - Faeces hard [Unknown]

NARRATIVE: CASE EVENT DATE: 201610
